FAERS Safety Report 8592873 (Version 3)
Quarter: 2013Q4

REPORT INFORMATION
  Report Type: Spontaneous
  Country: US (occurrence: US)
  Receive Date: 20120604
  Receipt Date: 20131129
  Transmission Date: 20140711
  Serious: Yes (Hospitalization, Disabling)
  Sender: FDA-Public Use
  Company Number: US-ASTRAZENECA-2012SE34738

PATIENT
  Age: 39 Year
  Sex: Female
  Weight: 81.6 kg

DRUGS (7)
  1. NEXIUM [Suspect]
     Route: 048
  2. NEXIUM [Suspect]
     Dosage: TWICE A DAY
     Route: 048
     Dates: start: 1997
  3. NEXIUM [Suspect]
     Route: 048
     Dates: start: 20110305
  4. XANAX [Concomitant]
  5. LEXPRO [Concomitant]
  6. FLEXERIL [Concomitant]
  7. NOERO [Concomitant]

REACTIONS (11)
  - Osteoporosis [Unknown]
  - Carpal tunnel syndrome [Unknown]
  - Intervertebral disc degeneration [Unknown]
  - Spinal cord compression [Unknown]
  - Arthritis [Unknown]
  - Bone disorder [Unknown]
  - Bone pain [Unknown]
  - Fracture [Unknown]
  - Lung disorder [Unknown]
  - Rheumatoid arthritis [Unknown]
  - Depression [Unknown]
